FAERS Safety Report 21300833 (Version 1)
Quarter: 2022Q3

REPORT INFORMATION
  Report Type: Spontaneous
  Country: NL (occurrence: NL)
  Receive Date: 20220907
  Receipt Date: 20220907
  Transmission Date: 20221027
  Serious: Yes (Hospitalization)
  Sender: FDA-Public Use
  Company Number: None

PATIENT
  Sex: Female

DRUGS (3)
  1. HYDROCHLOROTHIAZIDE\OLMESARTAN MEDOXOMIL [Suspect]
     Active Substance: HYDROCHLOROTHIAZIDE\OLMESARTAN MEDOXOMIL
     Indication: Hypertension
     Dosage: UNKNOWN,  OLMESARTAN/HYDROCHLOORTHIAZIDE TABLET 20/12,5MG / BRAND NAME NOT SPECIFIED
     Dates: start: 20100101, end: 20220610
  2. FLUCLOXACILLIN [Suspect]
     Active Substance: FLUCLOXACILLIN
     Indication: Erysipelas
     Dosage: 4 DOSAGE FORMS DAILY;  FLUCLOXACILLINE CAPSULE 500MG / BRAND NAME NOT SPECIFIED
     Dates: start: 20220525, end: 20220610
  3. FUROSEMIDE [Concomitant]
     Active Substance: FUROSEMIDE
     Indication: Product used for unknown indication
     Dosage: 40 MG (MILLIGRAM), FUROSEMIDE TABLET 40MG / BRAND NAME NOT SPECIFIED, THERAPY START DATE AND END DA

REACTIONS (2)
  - Acute kidney injury [Not Recovered/Not Resolved]
  - Tubulointerstitial nephritis [Not Recovered/Not Resolved]
